FAERS Safety Report 8747863 (Version 2)
Quarter: 2013Q1

REPORT INFORMATION
  Report Type: Spontaneous
  Country: US (occurrence: US)
  Receive Date: 20120827
  Receipt Date: 20130125
  Transmission Date: 20140127
  Serious: Yes (Hospitalization, Congenital Anomaly)
  Sender: FDA-Public Use
  Company Number: US-GLAXOSMITHKLINE-A0990830A

PATIENT
  Age: 0 Year
  Sex: Female

DRUGS (2)
  1. PAXIL [Suspect]
     Indication: PRODUCT USED FOR UNKNOWN INDICATION
     Route: 064
     Dates: end: 1998
  2. PHENERGAN [Concomitant]
     Indication: VOMITING IN PREGNANCY
     Route: 064

REACTIONS (5)
  - Congenital coronary artery malformation [Unknown]
  - Scoliosis [Unknown]
  - Partial seizures [Unknown]
  - Congenital anomaly [Unknown]
  - Foetal exposure during pregnancy [Unknown]
